FAERS Safety Report 8227343-8 (Version None)
Quarter: 2012Q1

REPORT INFORMATION
  Report Type: 
  Country: None (occurrence: None)
  Receive Date: 20120322
  Receipt Date: 20120316
  Transmission Date: 20120608
  Serious: Yes (Death, Other)
  Sender: FDA-Public Use
  Company Number: PHHY2011AU54601

PATIENT
  Sex: Female

DRUGS (5)
  1. ZOLEDRONOC ACID [Suspect]
     Indication: OSTEOPOROSIS
     Dosage: 5 MG, UNK
     Route: 042
     Dates: start: 20090515
  2. CARTIA XT [Concomitant]
     Indication: MYOCARDIAL ISCHAEMIA
     Dosage: 100 MG, QD
     Route: 048
  3. TRENTAL [Concomitant]
     Indication: MYOCARDIAL ISCHAEMIA
     Dosage: 400 MG, BID
     Route: 048
  4. SIMVASTATIN [Concomitant]
     Indication: MYOCARDIAL ISCHAEMIA
     Dosage: 20 MG, QD
     Route: 048
  5. BETA BLOCKING AGENTS [Concomitant]
     Indication: MYOCARDIAL ISCHAEMIA
     Dosage: 50 MG, BID
     Route: 048

REACTIONS (3)
  - ATRIAL FIBRILLATION [None]
  - ABDOMINAL PAIN [None]
  - MYOCARDIAL INFARCTION [None]
